FAERS Safety Report 15322023 (Version 3)
Quarter: 2018Q4

REPORT INFORMATION
  Report Type: Spontaneous
  Country: US (occurrence: US)
  Receive Date: 20180827
  Receipt Date: 20181121
  Transmission Date: 20190204
  Serious: Yes (Other)
  Sender: FDA-Public Use
  Company Number: US-BAYER-2018-158911

PATIENT
  Age: 19 Year
  Sex: Female

DRUGS (1)
  1. KYLEENA [Suspect]
     Active Substance: LEVONORGESTREL
     Dosage: 17.5 MCG/24HR, CONT
     Route: 015
     Dates: start: 20170407

REACTIONS (7)
  - Menorrhagia [None]
  - Menstruation irregular [None]
  - Device dislocation [None]
  - Dysmenorrhoea [None]
  - Pelvic pain [None]
  - Ovarian cyst [None]
  - Chronic gastritis [None]

NARRATIVE: CASE EVENT DATE: 20180807
